FAERS Safety Report 18194022 (Version 1)
Quarter: 2020Q3

REPORT INFORMATION
  Report Type: Spontaneous
  Country: US (occurrence: US)
  Receive Date: 20200825
  Receipt Date: 20200825
  Transmission Date: 20201103
  Serious: No
  Sender: FDA-Public Use
  Company Number: US-ROCHE-2612643

PATIENT
  Sex: Female

DRUGS (11)
  1. LISINOPRIL. [Concomitant]
     Active Substance: LISINOPRIL
  2. OSELTAMIVIR [Concomitant]
     Active Substance: OSELTAMIVIR
  3. AMLODIPINE [Concomitant]
     Active Substance: AMLODIPINE BESYLATE
  4. HYDRALAZINE [Concomitant]
     Active Substance: HYDRALAZINE HYDROCHLORIDE
  5. JAKAFI [Concomitant]
     Active Substance: RUXOLITINIB
  6. PEGASYS [Suspect]
     Active Substance: PEGINTERFERON ALFA-2A
     Indication: ESSENTIAL THROMBOCYTHAEMIA
     Dosage: 45 MCG (0.25 ML) UNDER SKIN IN THIGH OR ABDOMEN; ROTATE SITE, DISCARD VIAL AFTER EACH USE.
     Route: 065
     Dates: start: 20200526
  7. ANAGRELIDE. [Concomitant]
     Active Substance: ANAGRELIDE HYDROCHLORIDE
  8. NITROFURANTOIN. [Concomitant]
     Active Substance: NITROFURANTOIN
  9. AZITHROMYCIN ANHYDROUS. [Concomitant]
     Active Substance: AZITHROMYCIN ANHYDROUS
  10. MUPIROCIN. [Concomitant]
     Active Substance: MUPIROCIN
  11. HYDROCHLOROTH [Concomitant]
     Active Substance: HYDROCHLOROTHIAZIDE

REACTIONS (4)
  - Feeling abnormal [Unknown]
  - Intentional product use issue [Unknown]
  - Off label use [Unknown]
  - Influenza like illness [Recovered/Resolved]
